FAERS Safety Report 17111662 (Version 1)
Quarter: 2019Q4

REPORT INFORMATION
  Report Type: Spontaneous
  Country: US (occurrence: US)
  Receive Date: 20191204
  Receipt Date: 20191204
  Transmission Date: 20200122
  Serious: No
  Sender: FDA-Public Use
  Company Number: US-CELGENEUS-USA-20191200644

PATIENT
  Sex: Male

DRUGS (5)
  1. DEXAMETHASONE. [Concomitant]
     Active Substance: DEXAMETHASONE
     Indication: PRODUCT USED FOR UNKNOWN INDICATION
     Route: 065
  2. REVLIMID [Suspect]
     Active Substance: LENALIDOMIDE
     Indication: PLASMA CELL MYELOMA
     Dosage: 25 MILLIGRAM
     Route: 048
     Dates: start: 20190821
  3. DEXAMETHASONE. [Concomitant]
     Active Substance: DEXAMETHASONE
     Route: 065
  4. BIAXIN [Concomitant]
     Active Substance: CLARITHROMYCIN
     Indication: PRODUCT USED FOR UNKNOWN INDICATION
     Route: 065
  5. ELIQUIS [Concomitant]
     Active Substance: APIXABAN
     Indication: PULMONARY THROMBOSIS
     Route: 065

REACTIONS (2)
  - Urinary retention [Unknown]
  - Fatigue [Unknown]

NARRATIVE: CASE EVENT DATE: 2019
